FAERS Safety Report 6278024-1 (Version None)
Quarter: 2009Q3

REPORT INFORMATION
  Report Type: 
  Country: None (occurrence: None)
  Receive Date: 20090722
  Receipt Date: 20090710
  Transmission Date: 20100115
  Serious: Yes (Hospitalization)
  Sender: FDA-Public Use
  Company Number: PHHY2009GB28557

PATIENT
  Sex: Male

DRUGS (1)
  1. CLOZARIL [Suspect]
     Indication: SCHIZOPHRENIA
     Dosage: UNK
     Dates: start: 20010723

REACTIONS (4)
  - LIVER FUNCTION TEST ABNORMAL [None]
  - PLATELET COUNT INCREASED [None]
  - PNEUMONIA [None]
  - VARICELLA [None]
